FAERS Safety Report 7980802-5 (Version None)
Quarter: 2011Q4

REPORT INFORMATION
  Report Type: 
  Country: None (occurrence: None)
  Receive Date: 20111214
  Receipt Date: 20111205
  Transmission Date: 20120403
  Serious: Yes (Other)
  Sender: FDA-Public Use
  Company Number: US-ASTRAZENECA-2011SE73581

PATIENT
  Age: 87 Year
  Sex: Female
  Weight: 70.3 kg

DRUGS (3)
  1. CRESTOR [Suspect]
     Route: 048
  2. CRESTOR [Suspect]
     Indication: BLOOD CHOLESTEROL
     Route: 048
  3. CRESTOR [Suspect]
     Route: 048

REACTIONS (7)
  - LIMB INJURY [None]
  - MYALGIA [None]
  - MUSCULOSKELETAL CHEST PAIN [None]
  - MUSCLE SPASMS [None]
  - MUSCULOSKELETAL STIFFNESS [None]
  - NECK PAIN [None]
  - PAIN [None]
